FAERS Safety Report 16311728 (Version 2)
Quarter: 2019Q2

REPORT INFORMATION
  Report Type: Report from Study
  Country: FR (occurrence: FR)
  Receive Date: 20190514
  Receipt Date: 20190605
  Transmission Date: 20190711
  Serious: Yes (Death, Hospitalization, Other)
  Sender: FDA-Public Use
  Company Number: FR-JAZZ-2019-FR-003679

PATIENT

DRUGS (1)
  1. DEFITELIO [Suspect]
     Active Substance: DEFIBROTIDE SODIUM
     Indication: VENOOCCLUSIVE DISEASE
     Dosage: 21.9 MG/KG, QD
     Route: 042
     Dates: start: 20160421, end: 20160427

REACTIONS (6)
  - Respiratory disorder [Fatal]
  - Loss of consciousness [Fatal]
  - Intentional product use issue [Unknown]
  - Acute myeloid leukaemia recurrent [Fatal]
  - Oxygen saturation decreased [Fatal]
  - Muscle twitching [Fatal]

NARRATIVE: CASE EVENT DATE: 20160704
